FAERS Safety Report 8429336-4 (Version None)
Quarter: 2012Q2

REPORT INFORMATION
  Report Type: 
  Country: None (occurrence: None)
  Receive Date: 20120612
  Receipt Date: 20120604
  Transmission Date: 20120825
  Serious: Yes (Hospitalization)
  Sender: FDA-Public Use
  Company Number: US-BAYER-2011-067128

PATIENT
  Age: 40 Year
  Sex: Female
  Weight: 86.168 kg

DRUGS (8)
  1. ANESTHETICS, LOCAL [Concomitant]
  2. HYDROCODONE BITARTRATE + ACETAMINOPHEN [Concomitant]
     Indication: JOINT INJURY
     Dosage: UNK
     Dates: start: 20090822, end: 20091101
  3. IBUPROFEN [Concomitant]
     Dosage: UNK
     Dates: start: 20090822, end: 20091101
  4. YAZ [Suspect]
     Indication: DYSFUNCTIONAL UTERINE BLEEDING
     Dosage: UNK
     Dates: start: 20090318, end: 20090813
  5. FLAGYL [Concomitant]
     Indication: VULVOVAGINAL MYCOTIC INFECTION
     Dosage: UNK
     Dates: start: 20090729, end: 20090806
  6. FLUCONAZOLE [Concomitant]
     Indication: VULVOVAGINAL MYCOTIC INFECTION
     Dosage: UNK
     Dates: start: 20090318, end: 20090811
  7. PHENTERMINE [Concomitant]
     Indication: OBESITY
     Dosage: UNK
     Dates: start: 20080616, end: 20090514
  8. VALIUM [Concomitant]

REACTIONS (20)
  - PAIN IN EXTREMITY [None]
  - DEEP VEIN THROMBOSIS [None]
  - ANXIETY [None]
  - HYPOAESTHESIA [None]
  - GENERAL PHYSICAL HEALTH DETERIORATION [None]
  - INSOMNIA [None]
  - MUSCULAR WEAKNESS [None]
  - FEAR [None]
  - DYSPNOEA [None]
  - PARAESTHESIA [None]
  - MOVEMENT DISORDER [None]
  - PULMONARY EMBOLISM [None]
  - EMOTIONAL DISTRESS [None]
  - JOINT SWELLING [None]
  - ABASIA [None]
  - MUSCLE SPASMS [None]
  - CHEST PAIN [None]
  - OEDEMA PERIPHERAL [None]
  - ARTHRALGIA [None]
  - GAIT DISTURBANCE [None]
